FAERS Safety Report 5324612-6 (Version None)
Quarter: 2007Q2

REPORT INFORMATION
  Report Type: 
  Country: None (occurrence: None)
  Receive Date: 20070508
  Receipt Date: 20070426
  Transmission Date: 20071010
  Serious: Yes (Death)
  Sender: FDA-Public Use
  Company Number: 155764ISR

PATIENT
  Age: 6 Year
  Sex: Female

DRUGS (6)
  1. CARBOPLATIN [Suspect]
     Indication: RHABDOMYOSARCOMA
  2. ETOPOSIDE [Suspect]
     Indication: RHABDOMYOSARCOMA
  3. DACTINOMYCIN [Suspect]
     Indication: RHABDOMYOSARCOMA
  4. EPIRUBICIN [Suspect]
     Indication: RHABDOMYOSARCOMA
  5. IFOSFAMIDE [Suspect]
     Indication: RHABDOMYOSARCOMA
  6. VINCRISTINE [Suspect]
     Indication: RHABDOMYOSARCOMA

REACTIONS (12)
  - BETA HAEMOLYTIC STREPTOCOCCAL INFECTION [None]
  - BLOOD CULTURE POSITIVE [None]
  - CANDIDA SEROLOGY POSITIVE [None]
  - CANDIDIASIS [None]
  - DRUG INEFFECTIVE [None]
  - FEBRILE NEUTROPENIA [None]
  - LUNG INFILTRATION [None]
  - MUCOSAL INFLAMMATION [None]
  - PNEUMONITIS [None]
  - PNEUMOTHORAX [None]
  - RESPIRATORY FAILURE [None]
  - SPUTUM CULTURE POSITIVE [None]
